FAERS Safety Report 7714666-1 (Version None)
Quarter: 2011Q3

REPORT INFORMATION
  Report Type: 
  Country: None (occurrence: None)
  Receive Date: 20110829
  Receipt Date: 20100726
  Transmission Date: 20111222
  Serious: No
  Sender: FDA-Public Use
  Company Number: US-BAYER-201031380NA

PATIENT
  Age: 36 Year
  Sex: Female

DRUGS (1)
  1. MIRENA [Suspect]
     Indication: CONTRACEPTION
     Dosage: 20 MCG/24HR, CONT
     Route: 015
     Dates: start: 20060721, end: 20110720

REACTIONS (10)
  - ABDOMINAL PAIN [None]
  - AGGRESSION [None]
  - ABDOMINAL DISTENSION [None]
  - DEPRESSED MOOD [None]
  - GENITAL HAEMORRHAGE [None]
  - MEDICAL DEVICE COMPLICATION [None]
  - AMENORRHOEA [None]
  - NAUSEA [None]
  - MUSCLE SPASMS [None]
  - ALOPECIA [None]
